FAERS Safety Report 7978533-0 (Version None)
Quarter: 2011Q4

REPORT INFORMATION
  Report Type: 
  Country: None (occurrence: None)
  Receive Date: 20111214
  Receipt Date: 20111209
  Transmission Date: 20120403
  Serious: Yes (Hospitalization)
  Sender: FDA-Public Use
  Company Number: NL-AMGEN-NLDSP2011065930

PATIENT
  Age: 28 Year
  Sex: Female

DRUGS (3)
  1. NEULASTA [Suspect]
     Indication: PRODUCT USED FOR UNKNOWN INDICATION
  2. IBUPROFEN [Concomitant]
     Dosage: 600 MG, UNK
  3. ACETAMINOPHEN [Concomitant]
     Dosage: 500 MG, UNK

REACTIONS (3)
  - PYREXIA [None]
  - HEADACHE [None]
  - PAIN [None]
